FAERS Safety Report 24014445 (Version 1)
Quarter: 2024Q2

REPORT INFORMATION
  Report Type: Spontaneous
  Country: US (occurrence: US)
  Receive Date: 20240626
  Receipt Date: 20240626
  Transmission Date: 20240716
  Serious: Yes (Other)
  Sender: FDA-Public Use
  Company Number: US-SUN PHARMACEUTICAL INDUSTRIES LTD-2024R1-452579

PATIENT
  Age: 84 Year
  Sex: Male

DRUGS (1)
  1. EMPAGLIFLOZIN [Suspect]
     Active Substance: EMPAGLIFLOZIN
     Indication: Myeloproliferative neoplasm
     Dosage: 25 MILLIGRAM
     Route: 065

REACTIONS (2)
  - Polycythaemia [Unknown]
  - Cerebrovascular accident [Unknown]
